FAERS Safety Report 9099492 (Version 2)
Quarter: 2013Q1

REPORT INFORMATION
  Report Type: Spontaneous
  Country: FR (occurrence: FR)
  Receive Date: 20130214
  Receipt Date: 20130217
  Transmission Date: 20140127
  Serious: Yes (Other)
  Sender: FDA-Public Use
  Company Number: FR-BRISTOL-MYERS SQUIBB COMPANY-17375106

PATIENT
  Age: 58 Year
  Sex: Male

DRUGS (7)
  1. ERBITUX [Suspect]
     Indication: LIP AND/OR ORAL CAVITY CANCER
     Dosage: D^CED ON 04OCT2012 AND RESTARTED ON 28NOV12
     Route: 042
     Dates: start: 201006
  2. TAXOL INJ [Suspect]
     Indication: LIP AND/OR ORAL CAVITY CANCER
     Dosage: D^CED ON 04OCT2012 AND RESTARTED ON 28NOV12
     Route: 042
     Dates: start: 20110713
  3. SKENAN LP CAPS 100 MG [Concomitant]
  4. ACTISKENAN CAPS 30 MG [Concomitant]
  5. NEURONTIN [Concomitant]
     Dosage: CAPS
  6. INEXIUM [Concomitant]
     Dosage: TABLETS
  7. LEXOMIL [Concomitant]

REACTIONS (1)
  - Hepatitis [Recovered/Resolved]
